FAERS Safety Report 9259235 (Version 1)
Quarter: 2013Q2

REPORT INFORMATION
  Report Type: Spontaneous
  Country: US (occurrence: US)
  Receive Date: 20130426
  Receipt Date: 20130426
  Transmission Date: 20140414
  Serious: No
  Sender: FDA-Public Use
  Company Number: US-ASTRAZENECA-2013SE23285

PATIENT
  Age: 84 Year
  Sex: Female

DRUGS (14)
  1. TOPROL XL [Suspect]
     Indication: BLOOD PRESSURE ABNORMAL
     Route: 048
  2. TOPROL XL [Suspect]
     Indication: CARDIAC DISORDER
     Route: 048
  3. SEROQUEL [Suspect]
     Route: 048
     Dates: start: 2012
  4. SEROQUEL [Suspect]
     Route: 048
     Dates: start: 2012
  5. KEPPRA [Suspect]
     Indication: CONVULSION
     Route: 065
     Dates: start: 2012
  6. KEPPRA [Suspect]
     Indication: CONVULSION
     Route: 065
     Dates: start: 2012
  7. DILANTIN [Suspect]
     Indication: CONVULSION
     Route: 048
     Dates: start: 2012
  8. DILANTIN [Suspect]
     Indication: CONVULSION
     Route: 048
     Dates: start: 2012
  9. COUMADIN [Suspect]
     Indication: INTERNATIONAL NORMALISED RATIO ABNORMAL
     Route: 065
     Dates: start: 2012
  10. VITAMIN B12 [Concomitant]
  11. VITAMIN D [Concomitant]
  12. SPIRONOLACTONE [Concomitant]
     Indication: CARDIAC DISORDER
  13. TEMAZEPAM [Concomitant]
     Indication: SLEEP DISORDER
  14. VITAMIN E [Concomitant]

REACTIONS (3)
  - Myalgia [Recovering/Resolving]
  - Gait disturbance [Unknown]
  - Arthralgia [Unknown]
